FAERS Safety Report 8915254 (Version 1)
Quarter: 2012Q4

REPORT INFORMATION
  Report Type: 
  Country: US (occurrence: US)
  Receive Date: 20121119
  Receipt Date: 20121119
  Transmission Date: 20130627
  Serious: No
  Sender: FDA-Public Use
  Company Number: US-PFIZER INC-2012288255

PATIENT
  Age: 29 Year
  Sex: Female
  Weight: 77.1 kg

DRUGS (2)
  1. GEODON [Suspect]
     Indication: BIPOLAR DISORDER
     Dosage: one capsule of 20mg in the morning and two capsules of 20mg together in evening
     Route: 048
     Dates: start: 20121114, end: 20121115
  2. FOCALIN [Concomitant]
     Indication: ATTENTION DEFICIT-HYPERACTIVITY DISORDER
     Dosage: 10 mg, UNK

REACTIONS (3)
  - Rash [Not Recovered/Not Resolved]
  - Nausea [Not Recovered/Not Resolved]
  - Vomiting [Not Recovered/Not Resolved]
